FAERS Safety Report 25243484 (Version 1)
Quarter: 2025Q2

REPORT INFORMATION
  Report Type: Spontaneous
  Country: US (occurrence: US)
  Receive Date: 20250428
  Receipt Date: 20250428
  Transmission Date: 20250716
  Serious: Yes (Hospitalization)
  Sender: EMCURE PHARMACEUTICALS LTD
  Company Number: US-AVET LIFESCIENCES LTD-2025-AVET-000119

PATIENT
  Age: 67 Year
  Sex: Male

DRUGS (6)
  1. ACYCLOVIR [Suspect]
     Active Substance: ACYCLOVIR
     Indication: Antiviral prophylaxis
     Route: 065
  2. FLUDARABINE [Suspect]
     Active Substance: FLUDARABINE PHOSPHATE
     Indication: Bone marrow conditioning regimen
     Route: 065
  3. THYMOCYTE IMMUNE GLOBULIN NOS [Suspect]
     Active Substance: THYMOCYTE IMMUNE GLOBULIN NOS
     Indication: Prophylaxis against graft versus host disease
     Route: 065
  4. METHOTREXATE [Suspect]
     Active Substance: METHOTREXATE
     Indication: Prophylaxis against graft versus host disease
     Route: 065
  5. CYCLOSPORINE [Suspect]
     Active Substance: CYCLOSPORINE
     Indication: Prophylaxis against graft versus host disease
     Route: 065
  6. MELPHALAN [Suspect]
     Active Substance: MELPHALAN

REACTIONS (10)
  - Epstein-Barr viraemia [Unknown]
  - Campylobacter infection [Unknown]
  - Cytomegalovirus viraemia [Not Recovered/Not Resolved]
  - Herpes simplex [Recovering/Resolving]
  - Enterococcal infection [Unknown]
  - Candida infection [Unknown]
  - Renal failure [Unknown]
  - Post transplant lymphoproliferative disorder [Unknown]
  - Bronchopulmonary aspergillosis [Unknown]
  - Drug resistance [Unknown]
